FAERS Safety Report 8849527 (Version 1)
Quarter: 2012Q4

REPORT INFORMATION
  Report Type: Spontaneous
  Country: US (occurrence: None)
  Receive Date: 20121018
  Receipt Date: 20121018
  Transmission Date: 20130627
  Serious: Yes (Other)
  Sender: FDA-Public Use
  Company Number: None

PATIENT
  Age: 45 Year
  Sex: Female
  Weight: 65.77 kg

DRUGS (6)
  1. CYMBALTA [Suspect]
     Indication: DEPRESSION
     Route: 048
     Dates: start: 20120717, end: 20121010
  2. CYMBALTA [Suspect]
     Indication: FIBROMYALGIA
     Route: 048
     Dates: start: 20120717, end: 20121010
  3. CYMBALTA [Suspect]
     Indication: DEPRESSION
     Route: 048
  4. CYMBALTA [Suspect]
     Indication: FIBROMYALGIA
     Route: 048
  5. CYMBALTA [Suspect]
     Indication: DEPRESSION
     Route: 048
  6. CYMBALTA [Suspect]
     Indication: FIBROMYALGIA
     Route: 048

REACTIONS (14)
  - Headache [None]
  - Constipation [None]
  - Suicidal ideation [None]
  - Crying [None]
  - Anxiety [None]
  - Feeling of body temperature change [None]
  - Drug ineffective [None]
  - Dizziness [None]
  - Gait disturbance [None]
  - Nausea [None]
  - Amnesia [None]
  - Contusion [None]
  - Self injurious behaviour [None]
  - Drug withdrawal syndrome [None]
